FAERS Safety Report 14513964 (Version 1)
Quarter: 2018Q1

REPORT INFORMATION
  Report Type: Spontaneous
  Country: US (occurrence: US)
  Receive Date: 20180209
  Receipt Date: 20180209
  Transmission Date: 20180509
  Serious: No
  Sender: FDA-Public Use
  Company Number: US-AMNEAL PHARMACEUTICALS-2017AMN00295

PATIENT
  Sex: Female

DRUGS (1)
  1. LORAZEPAM. [Suspect]
     Active Substance: LORAZEPAM

REACTIONS (5)
  - Malaise [Unknown]
  - Product physical issue [Unknown]
  - Product substitution issue [Unknown]
  - Product odour abnormal [Unknown]
  - Product taste abnormal [Unknown]
